FAERS Safety Report 5583863-6 (Version None)
Quarter: 2008Q1

REPORT INFORMATION
  Report Type: 
  Country: None (occurrence: None)
  Receive Date: 20080102
  Receipt Date: 20080102
  Transmission Date: 20080703
  Serious: Yes (Life-Threatening, Hospitalization)
  Sender: FDA-Public Use
  Company Number: None

PATIENT
  Age: 47 Year
  Sex: Male

DRUGS (1)
  1. TRAMADOL HCL [Suspect]
     Indication: PAIN
     Dosage: HANDFULTAB ONCE PO
     Route: 048
     Dates: start: 20071121, end: 20071121

REACTIONS (6)
  - ALCOHOL USE [None]
  - INTENTIONAL OVERDOSE [None]
  - NAUSEA [None]
  - SEDATION [None]
  - SUICIDE ATTEMPT [None]
  - VOMITING [None]
